FAERS Safety Report 19677121 (Version 1)
Quarter: 2021Q3

REPORT INFORMATION
  Report Type: Spontaneous
  Country: JP (occurrence: JP)
  Receive Date: 20210809
  Receipt Date: 20210809
  Transmission Date: 20211014
  Serious: Yes (Hospitalization)
  Sender: FDA-Public Use
  Company Number: JP-PFIZER INC-202101008176

PATIENT
  Age: 48 Year
  Sex: Female

DRUGS (4)
  1. TACROLIMUS HYDRATE [Suspect]
     Active Substance: TACROLIMUS
     Indication: LYMPHANGIOLEIOMYOMATOSIS
  2. TACROLIMUS HYDRATE [Suspect]
     Active Substance: TACROLIMUS
     Indication: LUNG TRANSPLANT
     Dosage: UNK
     Route: 048
  3. SIROLIMUS. [Suspect]
     Active Substance: SIROLIMUS
     Indication: LYMPHANGIOLEIOMYOMATOSIS
  4. SIROLIMUS. [Suspect]
     Active Substance: SIROLIMUS
     Indication: LUNG TRANSPLANT
     Dosage: UNK
     Route: 048

REACTIONS (3)
  - Bacteraemia [Unknown]
  - Campylobacter gastroenteritis [Unknown]
  - Campylobacter infection [Unknown]
